FAERS Safety Report 6192876-5 (Version None)
Quarter: 2009Q2

REPORT INFORMATION
  Report Type: 
  Country: None (occurrence: None)
  Receive Date: 20090518
  Receipt Date: 20090511
  Transmission Date: 20091009
  Serious: Yes (Other)
  Sender: FDA-Public Use
  Company Number: US-BAYER-200833267NA

PATIENT
  Age: 59 Year
  Sex: Female
  Weight: 74 kg

DRUGS (15)
  1. CLIMARA [Suspect]
     Indication: MENOPAUSE
     Dosage: USED 1/2 A PATCH AT TIMES IN 1997
     Route: 062
     Dates: start: 19960921, end: 20011005
  2. PROMETRIUM [Suspect]
     Indication: MENOPAUSE
     Dosage: 1-12 OF EVERY MONTH
     Dates: start: 19990101, end: 20070601
  3. VIVELLE-DOT [Suspect]
     Indication: MENOPAUSE
     Route: 062
     Dates: start: 19990101, end: 20070601
  4. PREMARIN [Suspect]
     Indication: HOT FLUSH
     Route: 048
     Dates: start: 19960801
  5. PROVERA [Suspect]
     Indication: HOT FLUSH
     Route: 048
     Dates: start: 19960901
  6. NORVASC [Concomitant]
     Indication: HYPERTENSION
     Route: 048
     Dates: start: 19900101
  7. LEVOXYL [Concomitant]
     Indication: HYPOTHYROIDISM
     Dates: start: 19880101
  8. ZOCOR [Concomitant]
     Indication: BLOOD CHOLESTEROL INCREASED
     Dates: start: 19900101
  9. CITALOPRAM HYDROBROMIDE [Concomitant]
     Indication: DEPRESSION
     Dates: start: 19900101
  10. CELEXA [Concomitant]
     Indication: DRUG USE FOR UNKNOWN INDICATION
  11. NEXIUM [Concomitant]
     Indication: DRUG USE FOR UNKNOWN INDICATION
  12. NEURONTIN [Concomitant]
     Indication: BACK PAIN
  13. BAYER [Concomitant]
  14. VITAMIN D [Concomitant]
     Indication: RICKETS
  15. CALCIUM [Concomitant]
     Indication: RICKETS

REACTIONS (3)
  - ARTHRITIS [None]
  - BREAST CANCER [None]
  - MEMORY IMPAIRMENT [None]
